FAERS Safety Report 8226361-3 (Version None)
Quarter: 2012Q1

REPORT INFORMATION
  Report Type: 
  Country: None (occurrence: None)
  Receive Date: 20120321
  Receipt Date: 20120124
  Transmission Date: 20120608
  Serious: No
  Sender: FDA-Public Use
  Company Number: ES-GILEAD-2011-0044307

PATIENT
  Age: 48 Year
  Sex: Male

DRUGS (1)
  1. VIREAD [Suspect]
     Indication: PRODUCT USED FOR UNKNOWN INDICATION
     Dosage: UNK

REACTIONS (3)
  - PARAESTHESIA [None]
  - SKIN HYPERPIGMENTATION [None]
  - OEDEMA [None]
